FAERS Safety Report 23725969 (Version 1)
Quarter: 2024Q2

REPORT INFORMATION
  Report Type: Report from Study
  Country: US (occurrence: US)
  Receive Date: 20240410
  Receipt Date: 20240410
  Transmission Date: 20240715
  Serious: Yes (Other)
  Sender: FDA-Public Use
  Company Number: US-JNJFOC-20240403367

PATIENT
  Age: 34 Year
  Sex: Male

DRUGS (2)
  1. SPRAVATO [Suspect]
     Active Substance: ESKETAMINE
     Indication: Depression
     Dosage: ^56 MG, 1 TOTAL DOSE^
     Dates: start: 20231115, end: 20231115
  2. SPRAVATO [Suspect]
     Active Substance: ESKETAMINE
     Dosage: ^84 MG, 15 TOTAL DOSES^
     Dates: start: 20231129, end: 20240327

REACTIONS (8)
  - Mental impairment [Unknown]
  - Substance use [Unknown]
  - Sinus disorder [Not Recovered/Not Resolved]
  - Malaise [Unknown]
  - Stress [Unknown]
  - Somnolence [Unknown]
  - Anxiety [Unknown]
  - Depression [Unknown]
